FAERS Safety Report 7934700-3 (Version None)
Quarter: 2011Q4

REPORT INFORMATION
  Report Type: 
  Country: None (occurrence: None)
  Receive Date: 20111122
  Receipt Date: 20111122
  Transmission Date: 20120403
  Serious: Yes (Hospitalization, Other)
  Sender: FDA-Public Use
  Company Number: ZA-BAYER-2011-110645

PATIENT
  Age: 9 Month

DRUGS (2)
  1. ASPIRIN [Suspect]
     Dosage: UNK
  2. PANADO [Concomitant]

REACTIONS (7)
  - HYPOGLYCAEMIA [None]
  - METABOLIC ACIDOSIS [None]
  - TOXICITY TO VARIOUS AGENTS [None]
  - GASTROENTERITIS [None]
  - HYPOVOLAEMIC SHOCK [None]
  - HYPOXIC-ISCHAEMIC ENCEPHALOPATHY [None]
  - CEREBRAL PALSY [None]
